FAERS Safety Report 11073395 (Version 2)
Quarter: 2015Q2

REPORT INFORMATION
  Report Type: Spontaneous
  Country: GR (occurrence: GR)
  Receive Date: 20150428
  Receipt Date: 20150428
  Transmission Date: 20150821
  Serious: Yes (Hospitalization)
  Sender: FDA-Public Use
  Company Number: PHHY2015GR046531

PATIENT
  Age: 42 Year
  Sex: Male

DRUGS (6)
  1. CLOZAPINE. [Suspect]
     Active Substance: CLOZAPINE
     Dosage: 150 MG, QD
     Route: 065
  2. HALOPERIDOL. [Concomitant]
     Active Substance: HALOPERIDOL
     Indication: SCHIZOPHRENIA
     Route: 065
  3. CLOZAPINE. [Suspect]
     Active Substance: CLOZAPINE
     Dosage: 50 MG, BID
     Route: 065
  4. CLOZAPINE. [Suspect]
     Active Substance: CLOZAPINE
     Indication: SCHIZOPHRENIA
     Dosage: 12.5 MG, QD
     Route: 065
  5. RISPERIDONE. [Suspect]
     Active Substance: RISPERIDONE
     Indication: SCHIZOPHRENIA
     Route: 065
  6. DIAZEPAM. [Concomitant]
     Active Substance: DIAZEPAM
     Indication: SCHIZOPHRENIA
     Route: 065

REACTIONS (19)
  - Left ventricular dysfunction [Recovering/Resolving]
  - Systolic dysfunction [Unknown]
  - Tachycardia [Recovering/Resolving]
  - Hyperhidrosis [Unknown]
  - Drug ineffective [Unknown]
  - Myocarditis [Recovering/Resolving]
  - Fatigue [Unknown]
  - Hypotension [Recovering/Resolving]
  - Myocardial ischaemia [Unknown]
  - Vascular resistance pulmonary increased [Unknown]
  - Dyspnoea [Unknown]
  - Mitral valve incompetence [Unknown]
  - Left atrial dilatation [Unknown]
  - Renal impairment [Unknown]
  - Cardiogenic shock [Unknown]
  - Palpitations [Unknown]
  - Left ventricular hypertrophy [Unknown]
  - Troponin T increased [Unknown]
  - Atrial fibrillation [Unknown]
